FAERS Safety Report 7152312-9 (Version None)
Quarter: 2010Q4

REPORT INFORMATION
  Report Type: 
  Country: None (occurrence: None)
  Receive Date: 20101209
  Receipt Date: 20101209
  Transmission Date: 20110411
  Serious: Yes (Other)
  Sender: FDA-Public Use
  Company Number: None

PATIENT
  Sex: Male
  Weight: 83.4619 kg

DRUGS (2)
  1. BONIVA [Suspect]
     Indication: OSTEOPENIA
     Dosage: BONIVA 30 DAY TABLET 1 X MONTH ORAL
     Route: 048
     Dates: start: 20100901
  2. BONIVA [Suspect]
     Indication: OSTEOPENIA
     Dosage: BONIVA 30 DAY TABLET 1 X MONTH ORAL
     Route: 048
     Dates: start: 20101001

REACTIONS (1)
  - HYPERSENSITIVITY [None]
